FAERS Safety Report 21150194 (Version 1)
Quarter: 2022Q3

REPORT INFORMATION
  Report Type: Spontaneous
  Country: US (occurrence: US)
  Receive Date: 20220729
  Receipt Date: 20220729
  Transmission Date: 20221027
  Serious: Yes (Other)
  Sender: FDA-Public Use
  Company Number: US-FreseniusKabi-FK202210577

PATIENT
  Age: 19 Year
  Sex: Female

DRUGS (2)
  1. OXYTOCIN [Suspect]
     Active Substance: OXYTOCIN
     Indication: Product used for unknown indication
  2. BUPIVACAINE [Suspect]
     Active Substance: BUPIVACAINE
     Indication: Caesarean section
     Dosage: 1.6 ML OF HYPERBARIC BUPIVICAINE

REACTIONS (1)
  - Distributive shock [Unknown]
